FAERS Safety Report 20090129 (Version 2)
Quarter: 2022Q1

REPORT INFORMATION
  Report Type: Report from Study
  Country: BR (occurrence: BR)
  Receive Date: 20211119
  Receipt Date: 20220106
  Transmission Date: 20220423
  Serious: Yes (Hospitalization, Other)
  Sender: FDA-Public Use
  Company Number: BR-NOVARTISPH-NVSC2021BR261318

PATIENT
  Age: 44 Year
  Sex: Female
  Weight: 72 kg

DRUGS (7)
  1. RIBOCICLIB [Suspect]
     Active Substance: RIBOCICLIB
     Indication: Invasive ductal breast carcinoma
     Dosage: 600 MG, QD (22/0 AS REPORTED)
     Route: 048
     Dates: start: 20190422, end: 20190729
  2. RIBOCICLIB [Suspect]
     Active Substance: RIBOCICLIB
     Dosage: 400 MG, QD
     Route: 048
     Dates: start: 20210730
  3. LETROZOLE [Suspect]
     Active Substance: LETROZOLE
     Indication: Invasive ductal breast carcinoma
     Dosage: 2.5 MG, QD
     Route: 048
     Dates: start: 201810
  4. ZOLEDRONIC ACID [Suspect]
     Active Substance: ZOLEDRONIC ACID
     Indication: Product used for unknown indication
     Dosage: UNK
     Route: 065
  5. TAMOXIFEN [Suspect]
     Active Substance: TAMOXIFEN
     Indication: Metastases to pleura
     Dosage: UNK
     Route: 065
  6. TAMOXIFEN [Suspect]
     Active Substance: TAMOXIFEN
     Indication: Metastases to bone
  7. GOSERELIN [Concomitant]
     Active Substance: GOSERELIN
     Indication: Invasive ductal breast carcinoma
     Dosage: 3.6 MG, QMO
     Route: 058
     Dates: start: 201810

REACTIONS (3)
  - Dyspnoea [Unknown]
  - Neutropenia [Recovered/Resolved]
  - Pleural thickening [Unknown]

NARRATIVE: CASE EVENT DATE: 20190601
